FAERS Safety Report 15743432 (Version 1)
Quarter: 2018Q4

REPORT INFORMATION
  Report Type: Spontaneous
  Country: US (occurrence: US)
  Receive Date: 20181220
  Receipt Date: 20181220
  Transmission Date: 20190205
  Serious: No
  Sender: FDA-Public Use
  Company Number: US-AUROBINDO-AUR-APL-2018-031196

PATIENT

DRUGS (2)
  1. DOCUSATE SODIUM. [Suspect]
     Active Substance: DOCUSATE SODIUM
     Indication: FAECES SOFT
     Route: 065
  2. FINASTERIDE TABLETS USP 5MG [Suspect]
     Active Substance: FINASTERIDE
     Indication: TUMOUR PAIN
     Route: 065

REACTIONS (3)
  - Abdominal distension [Unknown]
  - Burning sensation [Unknown]
  - Gastrointestinal tract irritation [Unknown]
